FAERS Safety Report 24082973 (Version 1)
Quarter: 2024Q3

REPORT INFORMATION
  Report Type: Report from Study
  Country: US (occurrence: US)
  Receive Date: 20240712
  Receipt Date: 20240712
  Transmission Date: 20241016
  Serious: Yes (Death, Other)
  Sender: ACADIA PHARMACEUTICALS
  Company Number: US-ACADIA PHARMACEUTICALS INC.-ACA-2024-PIM-002911

PATIENT
  Age: 81 Year
  Sex: Female

DRUGS (16)
  1. NUPLAZID [Suspect]
     Active Substance: PIMAVANSERIN TARTRATE
     Indication: Parkinson^s disease
     Dosage: 34 MILLIGRAM, QD
     Route: 048
     Dates: start: 20230825, end: 20240617
  2. OLANZAPINE [Concomitant]
     Active Substance: OLANZAPINE
     Dosage: 7.5 MG
  3. ATROPINE [Concomitant]
     Active Substance: ATROPINE
     Dosage: 1 %
  4. ONELAX [BISACODYL] [Concomitant]
  5. CARBIDOPA\LEVODOPA [Concomitant]
     Active Substance: CARBIDOPA\LEVODOPA
     Dosage: 25/100 MG
  6. MORPHINE SULFATE [Concomitant]
     Active Substance: MORPHINE SULFATE
     Dosage: 100MG/5ML
  7. DILTIAZEM [Concomitant]
     Active Substance: DILTIAZEM
     Dosage: 90 MILLIGRAM
  8. PROCHLORPERAZINE [Concomitant]
     Active Substance: PROCHLORPERAZINE
     Dosage: 10 MILLIGRAM
  9. DIVALPROEX SODIUM [Concomitant]
     Active Substance: DIVALPROEX SODIUM
     Dosage: 125 MILLIGRAM
  10. METOPROLOL [Concomitant]
     Active Substance: METOPROLOL
     Dosage: 25 MILLIGRAM
  11. HALOPERIDOL [Concomitant]
     Active Substance: HALOPERIDOL
     Dosage: 2 MG/ML
  12. HYOSCYAMINE [Concomitant]
     Active Substance: HYOSCYAMINE
     Dosage: 0.125 MG
  13. LANTUS SOLOSTAR [Concomitant]
     Active Substance: INSULIN GLARGINE
  14. MAGNESIUM OXIDE [Concomitant]
     Active Substance: MAGNESIUM OXIDE
     Dosage: 400 MILLIGRAM
  15. SCOPOLAMINE [Concomitant]
     Active Substance: SCOPOLAMINE
  16. SENNA LEAF [Concomitant]
     Active Substance: SENNA LEAF
     Dosage: 8.6 MG

REACTIONS (1)
  - Death [Fatal]

NARRATIVE: CASE EVENT DATE: 20240617
